FAERS Safety Report 11337402 (Version 1)
Quarter: 2015Q3

REPORT INFORMATION
  Report Type: Spontaneous
  Country: US (occurrence: US)
  Receive Date: 20150803
  Receipt Date: 20150803
  Transmission Date: 20151125
  Serious: No
  Sender: FDA-Public Use
  Company Number: US-ELI_LILLY_AND_COMPANY-US200801004375

PATIENT
  Age: 35 Year
  Sex: Male
  Weight: 97.51 kg

DRUGS (3)
  1. ZYPREXA [Suspect]
     Active Substance: OLANZAPINE
     Dosage: 10 MG, UNK
     Dates: end: 2006
  2. ZYPREXA [Suspect]
     Active Substance: OLANZAPINE
     Dosage: 10 MG, UNK
     Dates: start: 19980324
  3. ZYPREXA [Suspect]
     Active Substance: OLANZAPINE
     Dates: start: 19991210, end: 20030326

REACTIONS (7)
  - Memory impairment [Unknown]
  - Diabetes mellitus [Not Recovered/Not Resolved]
  - Stress [Unknown]
  - Insomnia [Unknown]
  - Hyperphagia [Unknown]
  - Anxiety [Unknown]
  - Self esteem decreased [Unknown]

NARRATIVE: CASE EVENT DATE: 20000217
